FAERS Safety Report 7440046-2 (Version None)
Quarter: 2011Q2

REPORT INFORMATION
  Report Type: 
  Country: None (occurrence: None)
  Receive Date: 20110427
  Receipt Date: 20101209
  Transmission Date: 20111010
  Serious: Yes (Other)
  Sender: FDA-Public Use
  Company Number: US-BAYER-201021428NA

PATIENT
  Age: 34 Year
  Sex: Female

DRUGS (9)
  1. NSAID'S [Concomitant]
     Dosage: UNK UNK, PRN
  2. YAZ [Suspect]
     Indication: PREMENSTRUAL SYNDROME
  3. YASMIN [Suspect]
     Indication: CONTRACEPTION
     Dosage: AS USED DOSE: UNK
     Route: 048
     Dates: start: 20020101, end: 20080101
  4. YASMIN [Suspect]
     Indication: ACNE
  5. YASMIN [Suspect]
     Indication: PREMENSTRUAL SYNDROME
  6. ASCORBIC ACID [Concomitant]
     Dosage: UNK UNK, PRN
  7. YAZ [Suspect]
     Indication: ACNE
  8. YAZ [Suspect]
     Indication: CONTRACEPTION
     Dosage: AS USED DOSE: UNK
     Route: 048
     Dates: start: 20080101, end: 20091001
  9. ANTIBIOTICS [Concomitant]

REACTIONS (7)
  - CHOLECYSTITIS CHRONIC [None]
  - GALLBLADDER CHOLESTEROLOSIS [None]
  - GALLBLADDER INJURY [None]
  - DUODENITIS [None]
  - ABDOMINAL PAIN UPPER [None]
  - CHOLELITHIASIS [None]
  - FOOD INTOLERANCE [None]
